FAERS Safety Report 6710329-X (Version None)
Quarter: 2010Q2

REPORT INFORMATION
  Report Type: 
  Country: None (occurrence: None)
  Receive Date: 20100504
  Receipt Date: 20100425
  Transmission Date: 20101027
  Serious: Yes (Other)
  Sender: FDA-Public Use
  Company Number: PHHY2010CH26258

PATIENT
  Age: 61 Year
  Sex: Female

DRUGS (1)
  1. SANDOSTATIN LAR [Suspect]
     Indication: DIARRHOEA
     Dosage: UNK
     Dates: start: 19980101

REACTIONS (8)
  - FOOT FRACTURE [None]
  - FRACTURE [None]
  - HUMERUS FRACTURE [None]
  - OSTEOPOROSIS [None]
  - RIB FRACTURE [None]
  - SURGERY [None]
  - TIBIA FRACTURE [None]
  - WRIST FRACTURE [None]
